FAERS Safety Report 8687923 (Version 4)
Quarter: 2013Q2

REPORT INFORMATION
  Report Type: Spontaneous
  Country: US (occurrence: US)
  Receive Date: 20120727
  Receipt Date: 20130524
  Transmission Date: 20140414
  Serious: Yes (Hospitalization, Other)
  Sender: FDA-Public Use
  Company Number: US-009507513-1207USA006507

PATIENT
  Sex: Female
  Weight: 49.89 kg

DRUGS (5)
  1. FOSAMAX [Suspect]
     Indication: OSTEOPENIA
     Dosage: UNK
     Route: 048
  2. FOSAMAX [Suspect]
     Indication: OSTEOPENIA
     Dosage: 70 MG, QW
     Route: 048
     Dates: start: 2000
  3. ALENDRONATE SODIUM [Suspect]
     Indication: OSTEOPENIA
     Dosage: 70 MG, UNK
     Route: 048
     Dates: start: 200802, end: 201007
  4. CALCIUM (UNSPECIFIED) [Concomitant]
     Indication: OSTEOPENIA
  5. VITAMIN D (UNSPECIFIED) [Concomitant]
     Indication: OSTEOPENIA

REACTIONS (127)
  - Endodontic procedure [Unknown]
  - Biopsy bone [Unknown]
  - Dental implantation [Unknown]
  - Device breakage [Unknown]
  - Osteoarthritis [Unknown]
  - Drug intolerance [Unknown]
  - Antinuclear antibody positive [Unknown]
  - Asthma [Unknown]
  - Asthma [Unknown]
  - Bruxism [Unknown]
  - Poor quality sleep [Unknown]
  - Kyphosis [Unknown]
  - Tooth erosion [Unknown]
  - Malocclusion [Unknown]
  - Treatment failure [Unknown]
  - Osteoarthritis [Unknown]
  - Myofascial pain syndrome [Unknown]
  - Ligament rupture [Unknown]
  - Meniscus injury [Unknown]
  - Joint effusion [Unknown]
  - Osteoarthritis [Unknown]
  - Synovial cyst [Unknown]
  - Bone contusion [Unknown]
  - Bone infarction [Unknown]
  - Scoliosis [Unknown]
  - Intervertebral disc degeneration [Unknown]
  - Facet joint syndrome [Unknown]
  - Lumbar spinal stenosis [Unknown]
  - Nerve compression [Unknown]
  - Biliary dilatation [Unknown]
  - Excoriation [Unknown]
  - Skin wound [Unknown]
  - Goitre [Unknown]
  - Skin ulcer [Unknown]
  - Oral fungal infection [Unknown]
  - Device breakage [Unknown]
  - Dry mouth [Unknown]
  - Tooth extraction [Unknown]
  - Periodontal operation [Unknown]
  - Dental implantation [Unknown]
  - Sinus disorder [Unknown]
  - Device breakage [Unknown]
  - Tooth extraction [Unknown]
  - Laceration [Unknown]
  - Tooth extraction [Unknown]
  - Device failure [Unknown]
  - Neuropathy peripheral [Unknown]
  - Latent tuberculosis [Unknown]
  - Surgical failure [Unknown]
  - Urinary incontinence [Unknown]
  - Bladder neck suspension [Unknown]
  - Spinal osteoarthritis [Unknown]
  - Rib fracture [Unknown]
  - Skin ulcer [Unknown]
  - Limb operation [Unknown]
  - Carpal collapse [Unknown]
  - Cataract operation [Unknown]
  - Stasis dermatitis [Unknown]
  - Ecchymosis [Recovering/Resolving]
  - Osteoarthritis [Unknown]
  - Traumatic ulcer [Unknown]
  - Candida infection [Unknown]
  - Glossitis [Not Recovered/Not Resolved]
  - Candida infection [Not Recovered/Not Resolved]
  - Burning mouth syndrome [Unknown]
  - Tongue injury [Not Recovered/Not Resolved]
  - Tooth fracture [Unknown]
  - Tooth extraction [Unknown]
  - Dental caries [Unknown]
  - Pain [Unknown]
  - Dental caries [Unknown]
  - Device breakage [Unknown]
  - Tooth infection [Unknown]
  - Endodontic procedure [Unknown]
  - Stomatitis [Unknown]
  - Glossodynia [Unknown]
  - Bone fragmentation [Unknown]
  - Fall [Unknown]
  - Balance disorder [Unknown]
  - Hypertension [Unknown]
  - Fall [Unknown]
  - Injury [Unknown]
  - Pelvic pain [Unknown]
  - Tooth extraction [Unknown]
  - Debridement [Unknown]
  - Fractured ischium [Unknown]
  - Neck pain [Not Recovered/Not Resolved]
  - Osteomyelitis [Unknown]
  - Abdominal discomfort [Unknown]
  - Mouth ulceration [Unknown]
  - Gastrooesophageal reflux disease [Unknown]
  - Therapeutic response decreased [Unknown]
  - Headache [Not Recovered/Not Resolved]
  - Arthralgia [Unknown]
  - Drug ineffective [Unknown]
  - Osteomyelitis [Unknown]
  - Knee arthroplasty [Unknown]
  - Fall [Unknown]
  - Head injury [Unknown]
  - Eyelid ptosis [Unknown]
  - Thyroidectomy [Unknown]
  - Cholecystectomy [Unknown]
  - Osteoarthritis [Unknown]
  - Lobar pneumonia [Recovering/Resolving]
  - Anaemia postoperative [Unknown]
  - Radial nerve palsy [Unknown]
  - Cerebrovascular disorder [Unknown]
  - Non-cardiac chest pain [Unknown]
  - Lacunar infarction [Unknown]
  - Osteonecrosis of jaw [Unknown]
  - Depression [Not Recovered/Not Resolved]
  - Anxiety [Not Recovered/Not Resolved]
  - Adverse event [Unknown]
  - Chronic obstructive pulmonary disease [Not Recovered/Not Resolved]
  - Rheumatoid arthritis [Unknown]
  - Fall [Unknown]
  - Head injury [Unknown]
  - Head injury [Unknown]
  - Dental caries [Unknown]
  - Tooth disorder [Unknown]
  - Dental caries [Unknown]
  - Dental caries [Unknown]
  - Dental caries [Unknown]
  - Dental caries [Unknown]
  - Dental caries [Unknown]
  - Tooth disorder [Unknown]
  - Endodontic procedure [Unknown]
